FAERS Safety Report 8419303-9 (Version None)
Quarter: 2012Q2

REPORT INFORMATION
  Report Type: 
  Country: None (occurrence: None)
  Receive Date: 20120607
  Receipt Date: 20120605
  Transmission Date: 20120825
  Serious: Yes (Death)
  Sender: FDA-Public Use
  Company Number: DE-ROCHE-1072364

PATIENT
  Sex: Male
  Weight: 61 kg

DRUGS (6)
  1. AVASTIN [Suspect]
     Indication: COLORECTAL CANCER METASTATIC
     Dosage: LASR DOSE PRIOR TO SAE WAS ON 02/APR/2012
     Route: 042
     Dates: start: 20120305, end: 20120523
  2. OXALIPLATIN [Suspect]
     Indication: COLORECTAL CANCER METASTATIC
     Dosage: LASR DOSE PRIOR TO SAE WAS ON 02/APR/2012
     Route: 042
     Dates: start: 20120305, end: 20120523
  3. LEUCOVORIN CALCIUM [Suspect]
     Indication: COLORECTAL CANCER METASTATIC
     Dosage: LAST DOSE PRIOR TO SAE WAS ON 03/APR/2012
     Dates: start: 20120305, end: 20120523
  4. XELODA [Suspect]
     Indication: COLORECTAL CANCER METASTATIC
  5. FLUOROURACIL [Suspect]
     Dosage: LAST DOSE PRIOR TO SAE WAS ON 03/APR/2012
     Route: 040
     Dates: start: 20120305, end: 20120523
  6. FLUOROURACIL [Suspect]
     Indication: COLORECTAL CANCER METASTATIC
     Dosage: LAST DOSE PRIOR TO SAE WAS ON 03/APR/2012
     Route: 040
     Dates: start: 20120305, end: 20120523

REACTIONS (2)
  - SEPSIS [None]
  - LEUKOPENIA [None]
